FAERS Safety Report 13357130 (Version 1)
Quarter: 2017Q1

REPORT INFORMATION
  Report Type: Spontaneous
  Country: FR (occurrence: FR)
  Receive Date: 20170322
  Receipt Date: 20170322
  Transmission Date: 20170429
  Serious: Yes (Life-Threatening, Hospitalization, Other)
  Sender: FDA-Public Use
  Company Number: FR-BAXTER-2017BAX011345

PATIENT
  Age: 14 Year
  Sex: Female

DRUGS (34)
  1. CELLTOP 100 MG/5 ML, SOLUTION INJECTABLE POUR PERFUSION [Suspect]
     Active Substance: ETOPOSIDE
     Indication: T-CELL LYMPHOMA
     Dosage: CUMULATIVE DOSES
     Route: 065
  2. ENDOXAN 1000 MG, POUDRE POUR SOLUTION INJECTABLE [Suspect]
     Active Substance: CYCLOPHOSPHAMIDE
     Indication: T-CELL LYMPHOMA
     Dosage: CUMULATIVE DOSES 4 G/M2
     Route: 065
  3. VINCRISTINE [Suspect]
     Active Substance: VINCRISTINE
     Indication: T-CELL LYMPHOMA
     Dosage: CUMULATIVE DOSES
     Route: 065
  4. ASPARAGINASE [Suspect]
     Active Substance: ASPARAGINASE
     Indication: T-CELL LYMPHOMA
     Dosage: CUMULATIVE DOSES
     Route: 065
  5. FUROSEMIDE. [Suspect]
     Active Substance: FUROSEMIDE
     Indication: ADVERSE EVENT
     Dosage: INCREASED DOSES
     Route: 065
     Dates: start: 20170225
  6. ENDOXAN 1000 MG, POUDRE POUR SOLUTION INJECTABLE [Suspect]
     Active Substance: CYCLOPHOSPHAMIDE
     Dosage: SECOND OF TWO COURSES 50 MG/KG
     Route: 042
     Dates: start: 20170214, end: 20170214
  7. MYCOPHENOLATE MOFETIL. [Suspect]
     Active Substance: MYCOPHENOLATE MOFETIL
     Indication: STEM CELL TRANSPLANT
     Route: 042
     Dates: start: 20170217, end: 20170224
  8. METHOTREXATE. [Suspect]
     Active Substance: METHOTREXATE
     Indication: T-CELL LYMPHOMA
     Dosage: CUMULATIVE DOSES 28 G/M2, 15 SIMPLE OR TRIPLE INTRATHECAL INJECTIONS DEPENDING ON THE COURSE
     Route: 037
  9. FLUDARABINE [Suspect]
     Active Substance: FLUDARABINE PHOSPHATE
     Indication: BONE MARROW CONDITIONING REGIMEN
     Route: 065
  10. OXYGEN. [Suspect]
     Active Substance: OXYGEN
     Indication: ADVERSE EVENT
     Route: 045
     Dates: start: 20170224
  11. OXYGEN. [Suspect]
     Active Substance: OXYGEN
     Dosage: 2 L/MIN
     Route: 045
     Dates: start: 20170225
  12. CELLTOP 100 MG/5 ML, SOLUTION INJECTABLE POUR PERFUSION [Suspect]
     Active Substance: ETOPOSIDE
     Indication: BONE MARROW CONDITIONING REGIMEN
     Route: 065
     Dates: start: 20161205
  13. CICLOSPORIN [Suspect]
     Active Substance: CYCLOSPORINE
     Indication: IMMUNOSUPPRESSANT DRUG THERAPY
  14. INSULIN [Concomitant]
     Active Substance: INSULIN NOS
     Indication: DIABETES MELLITUS
     Route: 065
  15. ARACYTINE [Suspect]
     Active Substance: CYTARABINE
     Indication: T-CELL LYMPHOMA
     Dosage: CUMULATIVE DOSES A MINIMUM OF 12 G/M2
     Route: 065
  16. AIRVO OXYGEN [Suspect]
     Active Substance: OXYGEN
     Route: 055
     Dates: start: 20170223
  17. FUROSEMIDE. [Suspect]
     Active Substance: FUROSEMIDE
     Indication: ADVERSE EVENT
     Route: 065
  18. ENDOXAN 1000 MG, POUDRE POUR SOLUTION INJECTABLE [Suspect]
     Active Substance: CYCLOPHOSPHAMIDE
     Dosage: FIRST OF TWO COURSES 50 MG/KG
     Route: 042
     Dates: start: 20170213, end: 20170213
  19. MYCOPHENOLATE MOFETIL. [Suspect]
     Active Substance: MYCOPHENOLATE MOFETIL
     Indication: IMMUNOSUPPRESSANT DRUG THERAPY
  20. THIOTEPA. [Suspect]
     Active Substance: THIOTEPA
     Indication: BONE MARROW CONDITIONING REGIMEN
     Route: 065
  21. ZOPHREN [Suspect]
     Active Substance: ONDANSETRON
     Indication: PRODUCT USED FOR UNKNOWN INDICATION
     Route: 065
     Dates: start: 20170214
  22. OXYGEN. [Suspect]
     Active Substance: OXYGEN
     Dosage: 1 L/MIN
     Route: 045
     Dates: start: 20170226
  23. UROMITEXAN 5 G/50 ML, SOLUTION INJECTABLE POUR PERFUSION EN FLACON [Suspect]
     Active Substance: MESNA
     Indication: PRODUCT USED FOR UNKNOWN INDICATION
     Route: 065
     Dates: start: 20170214
  24. CICLOSPORIN [Suspect]
     Active Substance: CYCLOSPORINE
     Indication: STEM CELL TRANSPLANT
     Route: 042
     Dates: start: 20170217, end: 20170224
  25. ANTILYMPHOCYTE SERUM [Suspect]
     Active Substance: THYMOCYTE IMMUNE GLOBULIN NOS
     Indication: BONE MARROW CONDITIONING REGIMEN
     Dosage: CONDITIONING REGIMEN
     Route: 065
     Dates: start: 20161205
  26. EMEND [Suspect]
     Active Substance: APREPITANT
     Indication: PRODUCT USED FOR UNKNOWN INDICATION
     Route: 065
     Dates: start: 20170214
  27. HOLOXAN 2000 MG, POUDRE POUR USAGE PARENT?RAL [Suspect]
     Active Substance: IFOSFAMIDE
     Indication: T-CELL LYMPHOMA
     Dosage: 4 G/M2 CUMULATIVE DOSES
     Route: 065
  28. VP-16 [Suspect]
     Active Substance: ETOPOSIDE
     Indication: PRODUCT USED FOR UNKNOWN INDICATION
     Route: 065
  29. AIRVO OXYGEN [Suspect]
     Active Substance: OXYGEN
     Indication: ADVERSE EVENT
     Route: 055
     Dates: start: 20170222
  30. DOBUTAMINE [Suspect]
     Active Substance: DOBUTAMINE\DOBUTAMINE HYDROCHLORIDE
     Dosage: INCREASED DOSE
     Route: 065
     Dates: start: 20170225
  31. HEPARIN [Suspect]
     Active Substance: HEPARIN SODIUM
     Indication: ADVERSE EVENT
     Route: 065
     Dates: start: 20170224
  32. MITOXANTRONE TEVA 25 MG/12,5 ML, SOLUTION ? DILUER POUR PERFUSION [Suspect]
     Active Substance: MITOXANTRONE HYDROCHLORIDE
     Indication: T-CELL LYMPHOMA
     Dosage: R2/R1 BLOCK TYPE TREATMENT WITH CUMULATIVE DOSES
     Route: 065
  33. DAUNORUBICIN [Suspect]
     Active Substance: DAUNORUBICIN
     Indication: T-CELL LYMPHOMA
     Dosage: CUMULATIVE DOSES
     Route: 065
  34. DOBUTAMINE [Suspect]
     Active Substance: DOBUTAMINE\DOBUTAMINE HYDROCHLORIDE
     Indication: ADVERSE EVENT
     Route: 065
     Dates: start: 20170223

REACTIONS (5)
  - Cardiac failure acute [Not Recovered/Not Resolved]
  - Supraventricular tachycardia [Not Recovered/Not Resolved]
  - Cardiogenic shock [Not Recovered/Not Resolved]
  - Interstitial lung disease [Not Recovered/Not Resolved]
  - Ventricular tachycardia [Not Recovered/Not Resolved]

NARRATIVE: CASE EVENT DATE: 20170222
